FAERS Safety Report 6770176-X (Version None)
Quarter: 2010Q2

REPORT INFORMATION
  Report Type: 
  Country: None (occurrence: None)
  Receive Date: 20100615
  Receipt Date: 20100607
  Transmission Date: 20101027
  Serious: Yes (Hospitalization)
  Sender: FDA-Public Use
  Company Number: CA-MERCK-1005CAN00002

PATIENT
  Age: 58 Year
  Sex: Female
  Weight: 118 kg

DRUGS (19)
  1. INVANZ [Suspect]
     Indication: OSTEITIS
     Route: 042
     Dates: start: 20100420, end: 20100501
  2. CLONIDINE [Concomitant]
     Route: 065
  3. FUROSEMIDE [Concomitant]
     Route: 065
  4. FUROSEMIDE [Concomitant]
     Route: 065
  5. VALSARTAN [Concomitant]
     Route: 065
  6. CLOPIDOGREL BISULFATE [Concomitant]
     Route: 065
  7. AMLODIPINE BESYLATE [Concomitant]
     Route: 065
  8. ASPIRIN [Concomitant]
     Route: 065
  9. DOXAZOSIN MESYLATE [Concomitant]
     Route: 065
  10. METOPROLOL TARTRATE [Concomitant]
     Route: 065
  11. ATORVASTATIN CALCIUM [Concomitant]
     Route: 065
  12. PANTOPRAZOLE SODIUM [Concomitant]
     Route: 065
  13. ALLOPURINOL [Concomitant]
     Route: 065
  14. INSULIN [Concomitant]
     Route: 058
  15. DARBEPOETIN ALFA [Concomitant]
     Route: 065
  16. LEVOTHYROXINE SODIUM [Concomitant]
     Route: 065
  17. CYANOCOBALAMIN [Concomitant]
     Route: 065
  18. CALCIUM (UNSPECIFIED) [Concomitant]
     Route: 065
  19. FERROUS SULFATE [Concomitant]
     Route: 065

REACTIONS (4)
  - CONFUSIONAL STATE [None]
  - DELIRIUM [None]
  - DEPRESSED LEVEL OF CONSCIOUSNESS [None]
  - HALLUCINATIONS, MIXED [None]
